FAERS Safety Report 19843752 (Version 1)
Quarter: 2021Q3

REPORT INFORMATION
  Report Type: Spontaneous
  Country: CN (occurrence: CN)
  Receive Date: 20210917
  Receipt Date: 20210917
  Transmission Date: 20211014
  Serious: Yes (Death, Hospitalization, Other)
  Sender: FDA-Public Use
  Company Number: CN-JIANGSU HENGRUI MEDICINE CO., LTD.-2118483

PATIENT
  Age: 21 Year
  Sex: Male
  Weight: 58.4 kg

DRUGS (5)
  1. CISPLATIN. [Suspect]
     Active Substance: CISPLATIN
     Route: 041
     Dates: start: 20210726, end: 20210726
  2. SODIUM CHLORIDE. [Concomitant]
     Active Substance: SODIUM CHLORIDE
     Route: 041
     Dates: start: 20210726, end: 20210726
  3. SODIUM CHLORIDE. [Concomitant]
     Active Substance: SODIUM CHLORIDE
     Route: 041
     Dates: start: 20210726, end: 20210730
  4. FLUOROURACIL. [Suspect]
     Active Substance: FLUOROURACIL
     Route: 041
     Dates: start: 20210726, end: 20210730
  5. DOCETAXEL INJECTION USP, 20 MG/0.5 ML, SINGLE?DOSE VIAL, TWO?VIAL FORM [Suspect]
     Active Substance: DOCETAXEL
     Indication: NONKERATINISING CARCINOMA OF NASOPHARYNX
     Route: 041
     Dates: start: 20210726, end: 20210726

REACTIONS (3)
  - Death [Fatal]
  - Aspartate aminotransferase increased [Recovering/Resolving]
  - Alanine aminotransferase increased [Recovering/Resolving]

NARRATIVE: CASE EVENT DATE: 20210809
